FAERS Safety Report 18239399 (Version 1)
Quarter: 2020Q3

REPORT INFORMATION
  Report Type: Spontaneous
  Country: BD (occurrence: BD)
  Receive Date: 20200907
  Receipt Date: 20200907
  Transmission Date: 20201103
  Serious: Yes (Death)
  Sender: FDA-Public Use
  Company Number: BD-ROCHE-2672591

PATIENT
  Age: 83 Year
  Sex: Male

DRUGS (1)
  1. ACTEMRA [Suspect]
     Active Substance: TOCILIZUMAB
     Indication: COVID-19 PNEUMONIA
     Route: 041
     Dates: start: 20200823, end: 20200824

REACTIONS (3)
  - Death [Fatal]
  - Off label use [Fatal]
  - Intentional product use issue [Fatal]

NARRATIVE: CASE EVENT DATE: 20200827
